FAERS Safety Report 6011145-7 (Version None)
Quarter: 2008Q4

REPORT INFORMATION
  Report Type: 
  Country: None (occurrence: None)
  Receive Date: 20081216
  Receipt Date: 20081203
  Transmission Date: 20090506
  Serious: Yes (Other)
  Sender: FDA-Public Use
  Company Number: CHPA2008US21934

PATIENT
  Age: 72 Year
  Sex: Female
  Weight: 55.8 kg

DRUGS (1)
  1. EXCEDRIN TENSION HEADACHE (NCH) (ACETAMINOPHEN (PARACETAMOL), CAFFEINE [Suspect]
     Indication: HEADACHE
     Dosage: 2 TABS, IN A DAY, ORAL
     Route: 048
     Dates: start: 20081203, end: 20081203

REACTIONS (4)
  - ABDOMINAL DISTENSION [None]
  - DIZZINESS [None]
  - MALAISE [None]
  - RECTAL HAEMORRHAGE [None]
